FAERS Safety Report 6420580-4 (Version None)
Quarter: 2009Q4

REPORT INFORMATION
  Report Type: 
  Country: None (occurrence: None)
  Receive Date: 20091029
  Receipt Date: 20091026
  Transmission Date: 20100525
  Serious: Yes (Hospitalization)
  Sender: FDA-Public Use
  Company Number: GB-ABBOTT-09P-167-0575648-00

PATIENT
  Age: 60 Year
  Sex: Female

DRUGS (4)
  1. KLARICID [Suspect]
     Indication: DRUG USE FOR UNKNOWN INDICATION
  2. NICOTINE [Suspect]
     Indication: SMOKING CESSATION THERAPY
     Dates: start: 20090401, end: 20090406
  3. PREDNISOLONE [Suspect]
     Indication: CHRONIC OBSTRUCTIVE PULMONARY DISEASE
  4. NEBULISER [Suspect]
     Indication: CHRONIC OBSTRUCTIVE PULMONARY DISEASE

REACTIONS (5)
  - DRUG INTERACTION [None]
  - DYSPNOEA [None]
  - EXERCISE TOLERANCE DECREASED [None]
  - PRODUCTIVE COUGH [None]
  - SPUTUM DISCOLOURED [None]
